FAERS Safety Report 7443115-6 (Version None)
Quarter: 2011Q2

REPORT INFORMATION
  Report Type: 
  Country: None (occurrence: None)
  Receive Date: 20110428
  Receipt Date: 20110422
  Transmission Date: 20111010
  Serious: Yes (Hospitalization, Other)
  Sender: FDA-Public Use
  Company Number: US-ABBOTT-11P-163-0721536-00

PATIENT
  Sex: Female
  Weight: 65.83 kg

DRUGS (10)
  1. VITAMIN D [Concomitant]
     Indication: VITAMIN SUPPLEMENTATION
  2. CALCIUM [Concomitant]
     Indication: MINERAL SUPPLEMENTATION
  3. MULTI-VITAMIN [Concomitant]
     Indication: VITAMIN SUPPLEMENTATION
  4. HUMIRA [Suspect]
     Indication: CROHN'S DISEASE
     Dates: start: 20100101
  5. INHALER STEROID [Suspect]
     Indication: APHONIA
  6. IRON [Concomitant]
     Indication: MINERAL SUPPLEMENTATION
  7. HUMIRA [Suspect]
     Dates: start: 20100701
  8. FOLIC ACID [Concomitant]
     Indication: VITAMIN SUPPLEMENTATION
  9. AZATHIOPRINE [Concomitant]
     Indication: CROHN'S DISEASE
  10. VITAMIN B-12 [Concomitant]
     Indication: VITAMIN B12

REACTIONS (9)
  - ENTERITIS [None]
  - DYSPHONIA [None]
  - LARYNGEAL ERYTHEMA [None]
  - ASTHENIA [None]
  - ABDOMINAL PAIN [None]
  - APHTHOUS STOMATITIS [None]
  - PAIN [None]
  - VOMITING [None]
  - LARYNX IRRITATION [None]
